FAERS Safety Report 7765779-X (Version None)
Quarter: 2011Q3

REPORT INFORMATION
  Report Type: 
  Country: None (occurrence: None)
  Receive Date: 20110921
  Receipt Date: 20110511
  Transmission Date: 20111222
  Serious: No
  Sender: FDA-Public Use
  Company Number: US-BAYER-2011-042358

PATIENT
  Sex: Female

DRUGS (2)
  1. ALEVE (CAPLET) [Suspect]
     Indication: ARTHRITIS
     Dosage: 2 U, QD
     Route: 048
     Dates: start: 20080101
  2. ACETAMINOPHEN [Concomitant]

REACTIONS (2)
  - MEDICATION ERROR [None]
  - THERAPEUTIC RESPONSE DECREASED [None]
